FAERS Safety Report 4660085-4 (Version None)
Quarter: 2005Q2

REPORT INFORMATION
  Report Type: 
  Country: None (occurrence: None)
  Receive Date: 20050512
  Receipt Date: 20050504
  Transmission Date: 20051028
  Serious: Yes (Hospitalization)
  Sender: FDA-Public Use
  Company Number: US-AMGEN-US131633

PATIENT
  Age: 75 Year
  Sex: Female

DRUGS (1)
  1. PROCRIT [Suspect]
     Indication: ANAEMIA OF MALIGNANT DISEASE
     Dates: start: 20050201

REACTIONS (3)
  - CARDIAC FLUTTER [None]
  - OEDEMA PERIPHERAL [None]
  - THROMBOSIS [None]
